FAERS Safety Report 8340264-5 (Version None)
Quarter: 2012Q2

REPORT INFORMATION
  Report Type: 
  Country: None (occurrence: None)
  Receive Date: 20120507
  Receipt Date: 20120430
  Transmission Date: 20120825
  Serious: Yes (Other)
  Sender: FDA-Public Use
  Company Number: PHHY2011US52929

PATIENT
  Sex: Female

DRUGS (11)
  1. RECLAST [Concomitant]
  2. GILENYA [Suspect]
     Indication: MULTIPLE SCLEROSIS
     Dosage: 0.5 MG, QD
     Route: 048
     Dates: start: 20111201, end: 20120314
  3. GILENYA [Suspect]
     Indication: RELAPSING-REMITTING MULTIPLE SCLEROSIS
     Dosage: 0.5 MG, DAILY
     Route: 048
     Dates: start: 20110609
  4. LOVASTATIN [Concomitant]
     Indication: BLOOD CHOLESTEROL ABNORMAL
     Dosage: 40 MG, UNK
     Route: 048
  5. LAMICTAL [Concomitant]
     Indication: DEPRESSION
     Dosage: 200 MG, QD
  6. ZANAFLEX [Concomitant]
     Indication: MUSCLE SPASTICITY
     Dosage: 4 MG, QHS
  7. ADDERALL 5 [Concomitant]
  8. PERCOCET [Concomitant]
     Indication: PAIN
  9. ASPIRIN [Concomitant]
  10. CLONAZEPAM [Concomitant]
     Indication: MUSCLE SPASMS
     Dosage: 1 MG, UNK
  11. IBUPROFEN TABLETS [Concomitant]

REACTIONS (24)
  - T-LYMPHOCYTE COUNT DECREASED [None]
  - DEHYDRATION [None]
  - DYSPNOEA [None]
  - MOOD SWINGS [None]
  - COORDINATION ABNORMAL [None]
  - LYMPHOCYTE COUNT DECREASED [None]
  - DIZZINESS [None]
  - HYPOTENSION [None]
  - MUSCLE DISORDER [None]
  - CONFUSIONAL STATE [None]
  - PERONEAL NERVE PALSY [None]
  - DYSARTHRIA [None]
  - INFECTION [None]
  - MULTIPLE SCLEROSIS RELAPSE [None]
  - CHILLS [None]
  - ASTHENIA [None]
  - MUSCLE SPASMS [None]
  - DISORIENTATION [None]
  - FATIGUE [None]
  - VAGINAL DISORDER [None]
  - MALAISE [None]
  - VISION BLURRED [None]
  - CD4 LYMPHOCYTES DECREASED [None]
  - VAGINAL HAEMORRHAGE [None]
